FAERS Safety Report 12460515 (Version 4)
Quarter: 2016Q3

REPORT INFORMATION
  Report Type: Report from Study
  Country: US (occurrence: US)
  Receive Date: 20160613
  Receipt Date: 20160714
  Transmission Date: 20161109
  Serious: Yes (Hospitalization, Other)
  Sender: FDA-Public Use
  Company Number: US-BRISTOL-MYERS SQUIBB COMPANY-BMS-2016-042265

PATIENT
  Age: 43 Year
  Sex: Female
  Weight: 53.5 kg

DRUGS (4)
  1. INCB24360 [Suspect]
     Active Substance: EPACADOSTAT
     Indication: COLORECTAL CANCER
     Dosage: 100 MG, BID
     Route: 048
     Dates: start: 20160401, end: 20160519
  2. INCB24360 [Suspect]
     Active Substance: EPACADOSTAT
     Dosage: 100 MG, BID
     Route: 048
     Dates: start: 20160527
  3. NIVOLUMAB [Suspect]
     Active Substance: NIVOLUMAB
     Indication: COLORECTAL CANCER
     Dosage: 240 MG, EVERY OTHER WEEK
     Route: 042
     Dates: start: 20160401, end: 20160519
  4. NIVOLUMAB [Suspect]
     Active Substance: NIVOLUMAB
     Dosage: 240 MG,
     Route: 042
     Dates: start: 20160527

REACTIONS (1)
  - Enterocolitis [Recovered/Resolved]

NARRATIVE: CASE EVENT DATE: 20160519
